FAERS Safety Report 15216941 (Version 1)
Quarter: 2018Q3

REPORT INFORMATION
  Report Type: Spontaneous
  Country: US (occurrence: US)
  Receive Date: 20180704
  Receipt Date: 20180704
  Transmission Date: 20181010
  Serious: Yes (Hospitalization)
  Sender: FDA-Public Use
  Company Number: None

PATIENT
  Age: 27 Year
  Sex: Female
  Weight: 42.3 kg

DRUGS (1)
  1. PREDNISONE 10 MG TABLETS [Suspect]
     Active Substance: PREDNISONE
     Indication: COLITIS
     Dosage: ?          QUANTITY:3 TABLET(S);?
     Route: 048

REACTIONS (4)
  - Nausea [None]
  - Vomiting [None]
  - Swelling [None]
  - Dyspnoea [None]

NARRATIVE: CASE EVENT DATE: 20180704
